FAERS Safety Report 20072838 (Version 1)
Quarter: 2021Q4

REPORT INFORMATION
  Report Type: Spontaneous
  Country: CN (occurrence: None)
  Receive Date: 20211116
  Receipt Date: 20211116
  Transmission Date: 20220303
  Serious: Yes (Life-Threatening, Hospitalization)
  Sender: FDA-Public Use
  Company Number: CN-ROCHE-2955179

PATIENT
  Age: 52 Year
  Sex: Female
  Weight: 50 kg

DRUGS (6)
  1. AVASTIN [Suspect]
     Active Substance: BEVACIZUMAB
     Indication: Rectal cancer
     Dosage: 25-JUN-2021, 22-JUL-2021
     Route: 041
  2. AVASTIN [Suspect]
     Active Substance: BEVACIZUMAB
     Route: 041
     Dates: start: 20210813, end: 20210928
  3. XELODA [Suspect]
     Active Substance: CAPECITABINE
     Indication: Rectal cancer
     Dosage: XELOX: 15-APR-2021,08-MAY-2021,29-MAY-2021,25-JUN-2021,22-JUL-2021
     Route: 048
  4. XELODA [Suspect]
     Active Substance: CAPECITABINE
     Route: 048
     Dates: start: 20210813
  5. XELODA [Suspect]
     Active Substance: CAPECITABINE
     Dosage: 1.0G IN THE MORNING, 1.5G IN THE EVENING
     Route: 048
     Dates: start: 20210906
  6. OXALIPLATIN [Concomitant]
     Active Substance: OXALIPLATIN
     Indication: Rectal cancer
     Dosage: XELOX: 15-APR-2021,08-MAY-2021,29-MAY-2021,25-JUN-2021,22-JUL-2021
     Route: 041

REACTIONS (2)
  - Vaginal haemorrhage [Recovered/Resolved]
  - Myelosuppression [Not Recovered/Not Resolved]

NARRATIVE: CASE EVENT DATE: 20210925
